FAERS Safety Report 16382466 (Version 1)
Quarter: 2019Q2

REPORT INFORMATION
  Report Type: Spontaneous
  Country: US (occurrence: US)
  Receive Date: 20190426
  Receipt Date: 20190426
  Transmission Date: 20190711
  Serious: Yes (Hospitalization)
  Sender: FDA-Public Use
  Company Number: None

PATIENT
  Age: 68 Year
  Sex: Male
  Weight: 89.81 kg

DRUGS (7)
  1. LOPERAMIDE [Concomitant]
     Active Substance: LOPERAMIDE
  2. LENVIMA [Suspect]
     Active Substance: LENVATINIB
     Indication: HEPATOCELLULAR CARCINOMA
     Route: 048
     Dates: start: 20190221
  3. PROCHLORPERAZINE. [Concomitant]
     Active Substance: PROCHLORPERAZINE
  4. SPIRONOLACTONE. [Concomitant]
     Active Substance: SPIRONOLACTONE
  5. FLORASTAR [Concomitant]
     Active Substance: SACCHAROMYCES CEREVISIAE
  6. FUROSEMIDE. [Concomitant]
     Active Substance: FUROSEMIDE
  7. PROPANOLOL [Concomitant]
     Active Substance: PROPRANOLOL HYDROCHLORIDE

REACTIONS (4)
  - Haematemesis [None]
  - Ammonia increased [None]
  - Gastrointestinal haemorrhage [None]
  - Incoherent [None]

NARRATIVE: CASE EVENT DATE: 20190413
